FAERS Safety Report 7860217-0 (Version None)
Quarter: 2011Q4

REPORT INFORMATION
  Report Type: 
  Country: None (occurrence: None)
  Receive Date: 20111027
  Receipt Date: 20111017
  Transmission Date: 20120403
  Serious: Yes (Hospitalization, Other)
  Sender: FDA-Public Use
  Company Number: US-BAYER-2011-014927

PATIENT
  Age: 32 Year
  Sex: Female
  Weight: 67.574 kg

DRUGS (11)
  1. ZOFRAN [Concomitant]
  2. DROSPIRENONE AND ETHINYL ESTRADIOL [Suspect]
     Indication: ORAL CONTRACEPTION
     Dosage: UNK
     Dates: start: 20081220, end: 20090206
  3. IBUPROFEN (ADVIL) [Concomitant]
     Indication: ABDOMINAL PAIN
  4. IBUPROFEN (ADVIL) [Concomitant]
     Indication: HEADACHE
     Dosage: 2 PILLS AS NEEDED
     Route: 048
  5. OXYCODONE HCL AND ACETAMINOPHEN [Concomitant]
     Indication: PAIN
     Dosage: UNK
     Route: 048
     Dates: start: 20090106
  6. PERCOCET [Concomitant]
  7. FENTANYL-100 [Concomitant]
  8. YASMIN [Suspect]
     Indication: ORAL CONTRACEPTION
     Dosage: UNK
     Dates: start: 20080401, end: 20100201
  9. B-12 COMPLEX [Concomitant]
     Indication: HORDEOLUM
     Dosage: 1 PILL
     Route: 048
  10. IBUPROFEN [Concomitant]
     Indication: PAIN
     Dosage: 600 MG, UNK
     Route: 048
     Dates: start: 20090106
  11. VICODIN [Concomitant]
     Indication: ABDOMINAL PAIN
     Dosage: AS NEEDED
     Route: 048
     Dates: start: 20090108

REACTIONS (5)
  - PAIN [None]
  - CHOLECYSTECTOMY [None]
  - BILIARY COLIC [None]
  - GALLBLADDER POLYP [None]
  - CHOLECYSTITIS CHRONIC [None]
